FAERS Safety Report 9189678 (Version 2)
Quarter: 2013Q3

REPORT INFORMATION
  Report Type: Spontaneous
  Country: US (occurrence: US)
  Receive Date: 20130326
  Receipt Date: 20130718
  Transmission Date: 20140515
  Serious: Yes (Hospitalization)
  Sender: FDA-Public Use
  Company Number: US-BAYER-2013-037481

PATIENT
  Age: 44 Year
  Sex: Female
  Weight: 120.18 kg

DRUGS (13)
  1. YAZ [Suspect]
     Dosage: UNK
     Dates: start: 2008, end: 2010
  2. HYDROCODONE W/APAP [Concomitant]
     Dosage: 5-500 MG
  3. KLOR-CON [Concomitant]
     Dosage: 10 MEQ, UNK
  4. FUROSEMIDE [Concomitant]
     Dosage: 40 MG, UNK
  5. AMITRIPTYLIN [Concomitant]
     Dosage: 25 MG, UNK
  6. TIZANIDINE [Concomitant]
     Dosage: 4 MG, UNK
  7. CEPHALEXIN [Concomitant]
     Dosage: 500 MG, UNK
  8. SPIRONOLACTONE [Concomitant]
     Dosage: 25 MG, UNK
  9. HYDROCHLOROTHIAZIDE [Concomitant]
     Dosage: 25 MG, UNK
  10. NAPROXEN [Concomitant]
     Dosage: 500 MG, UNK
  11. AZITHROMYCIN [Concomitant]
     Dosage: 250 MG, UNK
  12. LORATADINE [Concomitant]
     Dosage: 10 MG, UNK
  13. METFORMIN [Concomitant]
     Dosage: 500 MG, UNK

REACTIONS (4)
  - Deep vein thrombosis [None]
  - Injury [None]
  - Pain [None]
  - Pain [None]
